FAERS Safety Report 7266364-9 (Version None)
Quarter: 2011Q1

REPORT INFORMATION
  Report Type: 
  Country: None (occurrence: None)
  Receive Date: 20110120
  Receipt Date: 20110106
  Transmission Date: 20110831
  Serious: Yes (Other)
  Sender: FDA-Public Use
  Company Number: 2011-00038

PATIENT
  Sex: Female

DRUGS (6)
  1. BENDROFLUAZIDE [Concomitant]
  2. LERCANDIPINE [Concomitant]
  3. SIMVASTATIN [Suspect]
     Indication: HYPERCHOLESTEROLAEMIA
     Dosage: 40 MG (40 MG, 1 IN 1 D), UNKNOWN
     Dates: start: 20000101, end: 20100101
  4. ASPIRIN [Concomitant]
  5. CANDESARTAN [Concomitant]
  6. EZETIMIBE [Concomitant]

REACTIONS (6)
  - ARTHRALGIA [None]
  - RED BLOOD CELL SEDIMENTATION RATE INCREASED [None]
  - C-REACTIVE PROTEIN INCREASED [None]
  - PAIN IN EXTREMITY [None]
  - MUSCULOSKELETAL PAIN [None]
  - MYALGIA [None]
